FAERS Safety Report 8018642 (Version 2)
Quarter: 2013Q1

REPORT INFORMATION
  Report Type: Spontaneous
  Country: CA (occurrence: CA)
  Receive Date: 20110701
  Receipt Date: 20130329
  Transmission Date: 20140127
  Serious: Yes (Other)
  Sender: FDA-Public Use
  Company Number: CA-ROCHE-785424

PATIENT
  Age: 34 None
  Sex: Female

DRUGS (4)
  1. TOCILIZUMAB [Suspect]
     Indication: RHEUMATOID ARTHRITIS
     Route: 042
     Dates: start: 20110315, end: 20110614
  2. PLAQUENIL [Concomitant]
     Route: 048
  3. NEXIUM [Concomitant]
     Route: 048
  4. ATASOL [Concomitant]
     Route: 048

REACTIONS (2)
  - Systemic lupus erythematosus [Recovered/Resolved]
  - Headache [Recovered/Resolved]
